FAERS Safety Report 18551348 (Version 6)
Quarter: 2024Q1

REPORT INFORMATION
  Report Type: Spontaneous
  Country: US (occurrence: US)
  Receive Date: 20201126
  Receipt Date: 20240228
  Transmission Date: 20240410
  Serious: No
  Sender: FDA-Public Use
  Company Number: US-PFIZER INC-2020468585

PATIENT
  Age: 53 Year
  Sex: Female
  Weight: 87.619 kg

DRUGS (12)
  1. DOCETAXEL [Suspect]
     Active Substance: DOCETAXEL\DOCETAXEL ANHYDROUS
     Indication: Lung cancer metastatic
     Dosage: 143 MG, SINGLE
     Dates: start: 20190509, end: 20190509
  2. DOCETAXEL [Suspect]
     Active Substance: DOCETAXEL\DOCETAXEL ANHYDROUS
     Dosage: 143 MG, SINGLE
     Dates: start: 20190530, end: 20190530
  3. DOCETAXEL [Suspect]
     Active Substance: DOCETAXEL\DOCETAXEL ANHYDROUS
     Dosage: 143 MG, SINGLE
     Dates: start: 20190620, end: 20190620
  4. DOCETAXEL [Suspect]
     Active Substance: DOCETAXEL\DOCETAXEL ANHYDROUS
     Dosage: 143 MG, SINGLE
     Dates: start: 20190711, end: 20190711
  5. DOCETAXEL [Suspect]
     Active Substance: DOCETAXEL\DOCETAXEL ANHYDROUS
     Dosage: 143 MG, SINGLE
     Dates: start: 20190801, end: 20190801
  6. DOCETAXEL [Suspect]
     Active Substance: DOCETAXEL\DOCETAXEL ANHYDROUS
     Dosage: 143 MG, SINGLE
     Dates: start: 20190822, end: 20190822
  7. DOCETAXEL [Suspect]
     Active Substance: DOCETAXEL\DOCETAXEL ANHYDROUS
     Dosage: 124 MG, SINGLE
     Dates: start: 20190912, end: 20190912
  8. DOCETAXEL [Suspect]
     Active Substance: DOCETAXEL\DOCETAXEL ANHYDROUS
     Indication: Lung cancer metastatic
     Dosage: 143 MG (C1 TO C6) AND 124 MG (C7), CYCLIC (TOTAL OF 7 CYCLES, EVERY 3 WEEKS)
     Dates: start: 20190509, end: 20190912
  9. TAXOTERE [Suspect]
     Active Substance: DOCETAXEL
     Indication: Lung cancer metastatic
     Dosage: 143 MG (C1 TO C6) AND 124 MG (C7), CYCLIC (TOTAL OF 7 CYCLES, EVERY 3 WEEKS)
     Dates: start: 20190509, end: 20190912
  10. ALIMTA [Concomitant]
     Active Substance: PEMETREXED DISODIUM
     Indication: Chemotherapy
     Dosage: UNK
  11. CARBOPLATIN [Concomitant]
     Active Substance: CARBOPLATIN
     Indication: Chemotherapy
     Dosage: UNK
  12. KEYTRUDA [Concomitant]
     Active Substance: PEMBROLIZUMAB
     Indication: Chemotherapy
     Dosage: UNK

REACTIONS (4)
  - Conjunctivitis [Unknown]
  - Blepharitis [Unknown]
  - Dacryostenosis acquired [Not Recovered/Not Resolved]
  - Lacrimation increased [Not Recovered/Not Resolved]

NARRATIVE: CASE EVENT DATE: 20190601
